FAERS Safety Report 5288248-8 (Version None)
Quarter: 2007Q2

REPORT INFORMATION
  Report Type: 
  Country: None (occurrence: None)
  Receive Date: 20070405
  Receipt Date: 20070330
  Transmission Date: 20071010
  Serious: Yes (Hospitalization)
  Sender: FDA-Public Use
  Company Number: US-JNJFOC-20070303672

PATIENT
  Sex: Female
  Weight: 63.5 kg

DRUGS (8)
  1. RISPERDAL [Suspect]
  2. RISPERDAL [Suspect]
     Indication: SCHIZOPHRENIA
  3. TOPAMAX [Suspect]
     Indication: DRUG THERAPY
  4. TOPAMAX [Suspect]
     Indication: WEIGHT DECREASED
  5. ATIVAN [Concomitant]
  6. ARTANE [Concomitant]
  7. BIRTH CONTROL PILL [Concomitant]
  8. IMODIUM [Concomitant]

REACTIONS (9)
  - ABASIA [None]
  - APHASIA [None]
  - CHOKING [None]
  - DYSPHAGIA [None]
  - DYSPNOEA [None]
  - HALLUCINATION [None]
  - INCONTINENCE [None]
  - MUSCLE RIGIDITY [None]
  - WEIGHT DECREASED [None]
